FAERS Safety Report 4407104-8 (Version None)
Quarter: 2004Q3

REPORT INFORMATION
  Report Type: 
  Country: None (occurrence: None)
  Receive Date: 20040721
  Receipt Date: 20040630
  Transmission Date: 20050211
  Serious: Yes (Hospitalization, Other)
  Sender: FDA-Public Use
  Company Number: USA030126326

PATIENT
  Age: 59 Year
  Sex: Female

DRUGS (21)
  1. EVISTA [Suspect]
     Indication: OSTEOPOROSIS
     Dosage: 60 MG DAY
  2. FORTEO [Suspect]
     Indication: BONE DISORDER
     Dosage: 20 UG DAY
     Dates: start: 20021206
  3. PREVACID [Concomitant]
  4. PREDNISONE [Concomitant]
  5. LOTENSIN [Concomitant]
  6. ACTOS (PIOGLITAZONE) [Concomitant]
  7. BONTRIL [Concomitant]
  8. LEVOXYLN (LEVOTHYROXINE SODIUM) [Concomitant]
  9. ASPIRIN [Concomitant]
  10. VITAMIN D [Concomitant]
  11. NEURONTIN [Concomitant]
  12. METHADONE HCL [Concomitant]
  13. PEPCID [Concomitant]
  14. KLONOPIN [Concomitant]
  15. MAGNESIUM OXIDE [Concomitant]
  16. PENTA-TRIAMTERENE HCTZ [Concomitant]
  17. RANITIDINE [Concomitant]
  18. METOCLOPRAMIDE [Concomitant]
  19. FUROSEMIDE [Concomitant]
  20. NEXIUM [Concomitant]
  21. PRILOSEC [Concomitant]

REACTIONS (33)
  - ASTHENIA [None]
  - BACK PAIN [None]
  - BLOOD CHLORIDE DECREASED [None]
  - BLOOD SODIUM DECREASED [None]
  - BONE SCAN ABNORMAL [None]
  - CHILLS [None]
  - COELIAC DISEASE [None]
  - CONDITION AGGRAVATED [None]
  - DIABETES MELLITUS INADEQUATE CONTROL [None]
  - FALL [None]
  - FATIGUE [None]
  - FEELING ABNORMAL [None]
  - IMPAIRED GASTRIC EMPTYING [None]
  - IMPAIRED HEALING [None]
  - INTERVERTEBRAL DISC COMPRESSION [None]
  - IRON DEFICIENCY ANAEMIA [None]
  - LUMBAR VERTEBRAL FRACTURE [None]
  - MULTIPLE FRACTURES [None]
  - MUSCLE CRAMP [None]
  - MUSCLE RUPTURE [None]
  - NAUSEA [None]
  - PCO2 INCREASED [None]
  - PITTING OEDEMA [None]
  - RIB FRACTURE [None]
  - SCAR [None]
  - SKIN ULCER [None]
  - SPINAL COMPRESSION FRACTURE [None]
  - SPINAL DISORDER [None]
  - STOMACH DISCOMFORT [None]
  - TOOTH INFECTION [None]
  - TOOTHACHE [None]
  - WEIGHT INCREASED [None]
  - WHITE BLOOD CELL COUNT INCREASED [None]
